FAERS Safety Report 15598214 (Version 1)
Quarter: 2018Q4

REPORT INFORMATION
  Report Type: Spontaneous
  Country: US (occurrence: US)
  Receive Date: 20181108
  Receipt Date: 20181108
  Transmission Date: 20190205
  Serious: Yes (Other)
  Sender: FDA-Public Use
  Company Number: None

PATIENT
  Age: 88 Year
  Sex: Male

DRUGS (13)
  1. MIDODRINE [Concomitant]
     Active Substance: MIDODRINE
  2. CILOSTAZOL. [Concomitant]
     Active Substance: CILOSTAZOL
  3. FINASTERIDE. [Concomitant]
     Active Substance: FINASTERIDE
  4. ANORO INHALER [Concomitant]
  5. MYRBETRIQ [Suspect]
     Active Substance: MIRABEGRON
     Indication: HYPERTONIC BLADDER
     Route: 048
     Dates: start: 20180801, end: 20181101
  6. MVI WITH IRON [Concomitant]
  7. TYLENOL [Concomitant]
     Active Substance: ACETAMINOPHEN
  8. PANTOPRAZOLE [Concomitant]
     Active Substance: PANTOPRAZOLE
  9. ROSUVASTATIN. [Concomitant]
     Active Substance: ROSUVASTATIN
  10. IRON SULFATE [Concomitant]
     Active Substance: FERROUS SULFATE ANHYDROUS
  11. STOOL SOFTENER (DOCUSATE) [Concomitant]
     Active Substance: DOCUSATE
  12. ASPIRIN. [Concomitant]
     Active Substance: ASPIRIN
  13. VITAMIN B12 [Concomitant]
     Active Substance: CYANOCOBALAMIN

REACTIONS (3)
  - Therapy cessation [None]
  - Abnormal behaviour [None]
  - Tardive dyskinesia [None]
